FAERS Safety Report 9886701 (Version 1)
Quarter: 2014Q1

REPORT INFORMATION
  Report Type: Spontaneous
  Country: CA (occurrence: CA)
  Receive Date: 20140210
  Receipt Date: 20140210
  Transmission Date: 20141002
  Serious: Yes (Life-Threatening, Hospitalization)
  Sender: FDA-Public Use
  Company Number: CA-009507513-1402CAN004256

PATIENT
  Age: 13 Year
  Sex: Female

DRUGS (5)
  1. NITROGLYCERIN [Suspect]
     Dosage: UNK
     Route: 062
  2. NITROGLYCERIN [Suspect]
     Dosage: 2.0 MICROGRAM, 1 EVERY 1 MINUTE
     Route: 042
  3. EPINEPHRINE [Suspect]
     Dosage: 10 ML, UNK
     Route: 058
  4. FENTANYL [Concomitant]
     Route: 065
  5. PROPOFOL [Concomitant]
     Route: 065

REACTIONS (11)
  - Cardiac failure [Unknown]
  - Accidental overdose [Unknown]
  - Acute pulmonary oedema [Unknown]
  - Ejection fraction decreased [Unknown]
  - Hypertension [Unknown]
  - Hypotension [Unknown]
  - Supraventricular tachycardia [Unknown]
  - Tachyarrhythmia [Unknown]
  - Troponin I increased [Unknown]
  - Ventricular hypokinesia [Unknown]
  - Wrong drug administered [Unknown]
